FAERS Safety Report 9409703 (Version 4)
Quarter: 2014Q4

REPORT INFORMATION
  Report Type: Spontaneous
  Country: JP (occurrence: JP)
  Receive Date: 20130719
  Receipt Date: 20141110
  Transmission Date: 20150529
  Serious: Yes (Death, Hospitalization, Other)
  Sender: FDA-Public Use
  Company Number: PHHY2013JP076082

PATIENT
  Age: 57 Year
  Sex: Male

DRUGS (2)
  1. GLIVEC [Suspect]
     Active Substance: IMATINIB MESYLATE
     Dosage: 300 MG, QD
     Route: 065
  2. GLIVEC [Suspect]
     Active Substance: IMATINIB MESYLATE
     Indication: CHRONIC MYELOID LEUKAEMIA TRANSFORMATION
     Dosage: 400 MG, QD
     Route: 065
     Dates: start: 201002

REACTIONS (8)
  - Chronic hepatitis C [Unknown]
  - Cerebral infarction [Unknown]
  - Hepatocellular carcinoma [Fatal]
  - Hemiplegia [Unknown]
  - Pleural effusion [Unknown]
  - Decreased appetite [Unknown]
  - Second primary malignancy [Fatal]
  - Tuberculosis [Unknown]

NARRATIVE: CASE EVENT DATE: 201008
